FAERS Safety Report 15111733 (Version 1)
Quarter: 2018Q3

REPORT INFORMATION
  Report Type: Report from Study
  Country: DE (occurrence: DE)
  Receive Date: 20180705
  Receipt Date: 20180705
  Transmission Date: 20181010
  Serious: Yes (Congenital Anomaly)
  Sender: FDA-Public Use
  Company Number: DE-TEVA-2018-DE-919869

PATIENT
  Sex: Female

DRUGS (8)
  1. RAMIPRIL. [Suspect]
     Active Substance: RAMIPRIL
     Indication: HYPERTENSION
     Dosage: EXPOSURE DURATION: 0?8 WEEKS
     Route: 064
  2. COLECALCIFEROL [Concomitant]
     Active Substance: CHOLECALCIFEROL
     Route: 064
  3. FUROSEMIDE. [Concomitant]
     Active Substance: FUROSEMIDE
     Dosage: EXPOSURE DURATION: 5+4?19+5 WEEKS
     Route: 064
  4. TORASEMIDE [Concomitant]
     Active Substance: TORSEMIDE
     Dosage: EXPOSURE DURATION: 0?5 WEEKS
     Route: 064
  5. TACROLIMUS. [Concomitant]
     Active Substance: TACROLIMUS
     Dosage: EXPOSURE DURATION: 0?19+6 WEEKS
     Route: 064
  6. FLUVASTATIN [Concomitant]
     Active Substance: FLUVASTATIN SODIUM
     Dosage: EXPOSURE DURATION: 0?8 WEEKS
     Route: 064
  7. PREDNISOLONE. [Concomitant]
     Active Substance: PREDNISOLONE
     Dosage: EXPOSURE DURATION: 0?35+1 WEEKS
     Route: 064
  8. OMEPRAZOLE. [Concomitant]
     Active Substance: OMEPRAZOLE
     Dosage: EXPOSURE DURATION: 0?8 WEEKS
     Route: 064

REACTIONS (6)
  - Pierre Robin syndrome [Unknown]
  - Patent ductus arteriosus [Unknown]
  - Atrial septal defect [Unknown]
  - Limb reduction defect [Unknown]
  - Dysmorphism [Unknown]
  - Foetal exposure during pregnancy [Unknown]
